FAERS Safety Report 6127286-X (Version None)
Quarter: 2009Q1

REPORT INFORMATION
  Report Type: 
  Country: None (occurrence: None)
  Receive Date: 20090319
  Receipt Date: 20090305
  Transmission Date: 20090719
  Serious: Yes (Other)
  Sender: FDA-Public Use
  Company Number: 430013M08USA

PATIENT
  Age: 45 Year
  Sex: Female
  Weight: 52 kg

DRUGS (6)
  1. NOVANTRONE [Suspect]
     Indication: MULTIPLE SCLEROSIS
     Dosage: 1 IN 3 MONTHS, INTRAVENOUS
     Route: 042
     Dates: start: 20050301, end: 20060101
  2. CYMBALTA [Concomitant]
  3. STEROIDS (CORTICOSTEROIDS) [Concomitant]
  4. TOPAMAX [Concomitant]
  5. NEURONTIN [Concomitant]
  6. PROVIGIL [Concomitant]

REACTIONS (3)
  - CARDIOMYOPATHY [None]
  - MITRAL VALVE INCOMPETENCE [None]
  - MYOCARDIAL INFARCTION [None]
